FAERS Safety Report 6265543-7 (Version None)
Quarter: 2009Q3

REPORT INFORMATION
  Report Type: 
  Country: None (occurrence: None)
  Receive Date: 20090709
  Receipt Date: 20090709
  Transmission Date: 20100115
  Serious: Yes (Hospitalization, Other)
  Sender: FDA-Public Use
  Company Number: None

PATIENT
  Age: 19 Year
  Sex: Male
  Weight: 70.3075 kg

DRUGS (2)
  1. CYMBALTA [Suspect]
     Indication: GENERALISED ANXIETY DISORDER
     Dosage: 60MG ONCE DAILY PO
     Route: 048
     Dates: start: 20080721, end: 20080908
  2. LORAZEPAM [Suspect]
     Indication: GENERALISED ANXIETY DISORDER
     Dosage: 1MG FOUR TIMES DAILY PO
     Route: 048

REACTIONS (5)
  - DEPRESSION [None]
  - DIZZINESS POSTURAL [None]
  - DRY MOUTH [None]
  - INSOMNIA [None]
  - VERTIGO [None]
